FAERS Safety Report 8211460-2 (Version None)
Quarter: 2012Q1

REPORT INFORMATION
  Report Type: 
  Country: None (occurrence: None)
  Receive Date: 20120315
  Receipt Date: 20120309
  Transmission Date: 20120608
  Serious: Yes (Hospitalization, Other)
  Sender: FDA-Public Use
  Company Number: US-SANOFI-AVENTIS-2012SA013974

PATIENT
  Age: 81 Year
  Sex: Female
  Weight: 61.7 kg

DRUGS (5)
  1. PLAVIX [Suspect]
     Route: 048
     Dates: start: 20080719, end: 20110921
  2. METOPROLOL SUCCINATE [Concomitant]
  3. LIPITOR [Concomitant]
  4. XANAX [Concomitant]
  5. PLAVIX [Suspect]
     Indication: STENT PLACEMENT
     Route: 048
     Dates: start: 20080719, end: 20110921

REACTIONS (10)
  - BACK PAIN [None]
  - THROMBOSIS [None]
  - PULMONARY EMBOLISM [None]
  - PAIN IN EXTREMITY [None]
  - BLOOD PRESSURE INADEQUATELY CONTROLLED [None]
  - INTERNATIONAL NORMALISED RATIO INCREASED [None]
  - SWELLING [None]
  - DYSPNOEA [None]
  - MUSCLE SPASMS [None]
  - DRUG LEVEL BELOW THERAPEUTIC [None]
